FAERS Safety Report 17510185 (Version 3)
Quarter: 2020Q2

REPORT INFORMATION
  Report Type: Spontaneous
  Country: US (occurrence: US)
  Receive Date: 20200306
  Receipt Date: 20200604
  Transmission Date: 20200713
  Serious: No
  Sender: FDA-Public Use
  Company Number: US-PFIZER INC-2020100001

PATIENT
  Age: 81 Year
  Sex: Female
  Weight: 57.15 kg

DRUGS (1)
  1. PREGABALIN. [Suspect]
     Active Substance: PREGABALIN
     Indication: DIABETIC NEUROPATHY
     Dosage: 1 DF, UNK (ONLY TRIED 1 PILL)

REACTIONS (1)
  - Drug ineffective [Unknown]
